FAERS Safety Report 11402310 (Version 1)
Quarter: 2015Q3

REPORT INFORMATION
  Report Type: Spontaneous
  Country: US (occurrence: None)
  Receive Date: 20150807
  Receipt Date: 20150807
  Transmission Date: 20151125
  Serious: No
  Sender: FDA-Public Use
  Company Number: 2015FE01910

PATIENT
  Age: 83 Year
  Sex: Male
  Weight: 89.8 kg

DRUGS (4)
  1. ANTACIDS (ANTACIDS) [Concomitant]
  2. PREPOPIK [Suspect]
     Active Substance: ANHYDROUS CITRIC ACID\MAGNESIUM OXIDE\SODIUM PICOSULFATE
     Dosage: 16.2 G, UNK SPLIT DOSE REGIMEN, ORAL
     Route: 048
     Dates: start: 20150602, end: 20150603
  3. ASPIRIN /00002701/ (ACETYLSALICYLIC ACID) [Concomitant]
  4. VITAMINS /00067501/ (ASCORBIC ACID, ERGOCALCIFEROL, NICOTINAMIDE, RETINOL, RIBOFLAVIN, THIAMINE HYDROCHLORIDE) [Concomitant]

REACTIONS (1)
  - Nausea [None]

NARRATIVE: CASE EVENT DATE: 20150603
